FAERS Safety Report 9245788 (Version 3)
Quarter: 2017Q1

REPORT INFORMATION
  Report Type: Report from Study
  Country: JP (occurrence: JP)
  Receive Date: 20130422
  Receipt Date: 20170206
  Transmission Date: 20170429
  Serious: Yes (Hospitalization)
  Sender: FDA-Public Use
  Company Number: JP-ROCHE-1154463

PATIENT
  Age: 75 Year
  Sex: Male

DRUGS (10)
  1. MAGMITT [Concomitant]
     Active Substance: MAGNESIUM OXIDE
     Route: 065
     Dates: start: 2011
  2. RITUXIMAB [Suspect]
     Active Substance: RITUXIMAB
     Indication: B-CELL LYMPHOMA
     Route: 042
     Dates: start: 20120201, end: 20121001
  3. CRAVIT [Concomitant]
     Active Substance: LEVOFLOXACIN
     Route: 065
     Dates: start: 20120309
  4. EXFORGE [Concomitant]
     Active Substance: AMLODIPINE BESYLATE\VALSARTAN
     Route: 065
     Dates: start: 20120803
  5. SELBEX [Concomitant]
     Active Substance: TEPRENONE
     Route: 065
     Dates: start: 200311
  6. FAMOTIDINE. [Concomitant]
     Active Substance: FAMOTIDINE
     Route: 065
     Dates: start: 200311
  7. TOWAMIN [Concomitant]
     Active Substance: ATENOLOL
     Route: 065
  8. INNOLET 30R [Concomitant]
     Active Substance: INSULIN NOS
  9. ERYTHROCIN LACTOBIONATE [Concomitant]
     Active Substance: ERYTHROMYCIN LACTOBIONATE
     Route: 065
     Dates: start: 20120309
  10. LACTOBACILLUS BIFIDUS [Concomitant]
     Route: 065
     Dates: start: 200311

REACTIONS (2)
  - Sepsis [Recovered/Resolved]
  - Hepatic neoplasm [Not Recovered/Not Resolved]

NARRATIVE: CASE EVENT DATE: 20121012
